FAERS Safety Report 4883826-X (Version None)
Quarter: 2006Q1

REPORT INFORMATION
  Report Type: 
  Country: None (occurrence: None)
  Receive Date: 20060113
  Receipt Date: 20051222
  Transmission Date: 20060701
  Serious: Yes (Hospitalization)
  Sender: FDA-Public Use
  Company Number: US_0508120893

PATIENT
  Age: 52 Year
  Sex: 0

DRUGS (8)
  1. ZYPREXA [Suspect]
     Indication: BIPOLAR DISORDER
     Dosage: UNK
     Route: 065
     Dates: start: 19980101, end: 20040601
  2. PROZAC [Concomitant]
  3. BUPROPION HCL [Concomitant]
  4. ZOLOFT [Concomitant]
  5. DEPAKOTE [Concomitant]
  6. LIPITOR [Concomitant]
  7. PRIMIDONE [Concomitant]
  8. KLONOPIN [Concomitant]

REACTIONS (5)
  - BLOOD CHOLESTEROL INCREASED [None]
  - BLOOD TRIGLYCERIDES INCREASED [None]
  - DIABETES MELLITUS NON-INSULIN-DEPENDENT [None]
  - HYPONATRAEMIA [None]
  - PNEUMONIA PRIMARY ATYPICAL [None]
